FAERS Safety Report 23645994 (Version 2)
Quarter: 2024Q2

REPORT INFORMATION
  Report Type: Spontaneous
  Country: US (occurrence: US)
  Receive Date: 20240319
  Receipt Date: 20240405
  Transmission Date: 20240716
  Serious: Yes (Other)
  Sender: FDA-Public Use
  Company Number: ENDG23-02119

PATIENT
  Age: 78 Year
  Sex: Female

DRUGS (6)
  1. QUESTRAN [Suspect]
     Active Substance: CHOLESTYRAMINE
     Indication: Dumping syndrome
     Dosage: 9 G, BID
     Route: 048
  2. QUESTRAN [Suspect]
     Active Substance: CHOLESTYRAMINE
     Indication: Dumping syndrome
     Dosage: 9 G, BID
     Route: 048
  3. QUESTRAN [Suspect]
     Active Substance: CHOLESTYRAMINE
     Indication: Diarrhoea
     Dosage: 9 G, OD (DOSE REDUCED)
     Route: 048
     Dates: start: 202304
  4. QUESTRAN [Suspect]
     Active Substance: CHOLESTYRAMINE
     Indication: Diarrhoea
     Dosage: 9 G, OD (DOSE REDUCED)
     Route: 048
     Dates: start: 202304
  5. QUESTRAN [Suspect]
     Active Substance: CHOLESTYRAMINE
     Dosage: 2 DOSAGE FORM, DAILY (TWO PACKETS, DAILY)
     Route: 065
  6. QUESTRAN [Suspect]
     Active Substance: CHOLESTYRAMINE
     Dosage: 2 DOSAGE FORM, DAILY (TWO PACKETS, DAILY)
     Route: 065

REACTIONS (9)
  - Renal failure [Not Recovered/Not Resolved]
  - Dehydration [Unknown]
  - Diarrhoea [Unknown]
  - Intentional product misuse [Unknown]
  - Product dose omission issue [Not Recovered/Not Resolved]
  - Expired product administered [Not Recovered/Not Resolved]
  - Off label use [Not Recovered/Not Resolved]
  - Drug effective for unapproved indication [Not Recovered/Not Resolved]
  - Product availability issue [Not Recovered/Not Resolved]

NARRATIVE: CASE EVENT DATE: 20230401
